FAERS Safety Report 4587854-3 (Version None)
Quarter: 2005Q1

REPORT INFORMATION
  Report Type: 
  Country: None (occurrence: None)
  Receive Date: 20050125
  Receipt Date: 20041006
  Transmission Date: 20050727
  Serious: No
  Sender: FDA-Public Use
  Company Number: USA040977898

PATIENT
  Age: 75 Year
  Sex: Female

DRUGS (5)
  1. CITRACAL (CALCIUM CITRATE) [Concomitant]
  2. SYNTHROID [Concomitant]
  3. CELEBREX [Concomitant]
  4. FORTEO [Suspect]
  5. VITAMIN B NOS. [Concomitant]

REACTIONS (1)
  - BLOOD CALCIUM INCREASED [None]
